FAERS Safety Report 20599845 (Version 15)
Quarter: 2024Q1

REPORT INFORMATION
  Report Type: Spontaneous
  Country: US (occurrence: US)
  Receive Date: 20220316
  Receipt Date: 20240321
  Transmission Date: 20240409
  Serious: No
  Sender: FDA-Public Use
  Company Number: US-BIOGEN-2022BI01104636

PATIENT
  Age: 29 Year
  Sex: Female

DRUGS (2)
  1. TYSABRI [Suspect]
     Active Substance: NATALIZUMAB
     Indication: Multiple sclerosis
     Route: 050
     Dates: start: 20181001, end: 202201
  2. TYSABRI [Suspect]
     Active Substance: NATALIZUMAB
     Route: 050

REACTIONS (12)
  - Product dose omission issue [Unknown]
  - Dysgraphia [Not Recovered/Not Resolved]
  - Multiple sclerosis relapse [Not Recovered/Not Resolved]
  - Bradykinesia [Unknown]
  - Body temperature fluctuation [Unknown]
  - Motion sickness [Unknown]
  - Retching [Unknown]
  - SARS-CoV-2 test positive [Unknown]
  - Frustration tolerance decreased [Recovered/Resolved]
  - Stress [Recovered/Resolved]
  - Illness [Recovered/Resolved]
  - Fatigue [Unknown]

NARRATIVE: CASE EVENT DATE: 20181001
